FAERS Safety Report 6197251-5 (Version None)
Quarter: 2009Q2

REPORT INFORMATION
  Report Type: 
  Country: None (occurrence: None)
  Receive Date: 20090521
  Receipt Date: 20090507
  Transmission Date: 20091009
  Serious: Yes (Other)
  Sender: FDA-Public Use
  Company Number: LU-RANBAXY-2009RR-24122

PATIENT
  Age: 41 Year
  Sex: Female

DRUGS (7)
  1. TOPIRAMATE [Suspect]
     Indication: EPILEPSY
     Dosage: 150 MG, QD
     Dates: start: 20040701, end: 20071201
  2. VALPROIC ACID [Concomitant]
     Indication: CONVULSION
  3. ATENOLOL [Concomitant]
  4. MYCOPHENOLATE MOFETIL [Concomitant]
  5. CYCLOSPORINE [Concomitant]
  6. METHYLPREDNISOLONE [Concomitant]
  7. LEVETIRACETAM [Concomitant]
     Indication: EPILEPSY
     Dosage: UNK
     Dates: start: 20071201

REACTIONS (1)
  - MACULOPATHY [None]
